FAERS Safety Report 16245550 (Version 1)
Quarter: 2019Q2

REPORT INFORMATION
  Report Type: Spontaneous
  Country: IE (occurrence: IE)
  Receive Date: 20190426
  Receipt Date: 20190426
  Transmission Date: 20190711
  Serious: Yes (Hospitalization, Other)
  Sender: FDA-Public Use
  Company Number: IE-009507513-1904IRL010582

PATIENT
  Age: 52 Year
  Sex: Male

DRUGS (1)
  1. PEMBROLIZUMAB. [Suspect]
     Active Substance: PEMBROLIZUMAB
     Indication: MALIGNANT MELANOMA
     Dosage: 2 MILLIGRAM/KILOGRAM, Q3W
     Dates: start: 201701

REACTIONS (4)
  - Type 1 diabetes mellitus [Recovering/Resolving]
  - Immune-mediated adverse reaction [Recovering/Resolving]
  - Primary hypothyroidism [Unknown]
  - Diabetic ketoacidosis [Recovered/Resolved]
